FAERS Safety Report 20364830 (Version 3)
Quarter: 2022Q3

REPORT INFORMATION
  Report Type: Report from Study
  Country: US (occurrence: US)
  Receive Date: 20220122
  Receipt Date: 20220729
  Transmission Date: 20221026
  Serious: Yes (Other)
  Sender: FDA-Public Use
  Company Number: US-UCBSA-2021033924

PATIENT
  Age: 75 Year
  Sex: Female

DRUGS (2)
  1. CERTOLIZUMAB PEGOL [Suspect]
     Active Substance: CERTOLIZUMAB PEGOL
     Indication: Rheumatoid arthritis
     Dosage: 400 MILLIGRAM, EV 4 WEEKS
     Dates: start: 20210628
  2. BENADRYL [Concomitant]
     Active Substance: DIPHENHYDRAMINE HYDROCHLORIDE
     Indication: Pruritus

REACTIONS (17)
  - Bronchitis [Recovered/Resolved]
  - Fibromyalgia [Unknown]
  - Sinusitis [Recovered/Resolved]
  - Sinus pain [Recovered/Resolved]
  - Nerve block [Not Recovered/Not Resolved]
  - Nasopharyngitis [Not Recovered/Not Resolved]
  - Illness [Not Recovered/Not Resolved]
  - Pruritus [Recovered/Resolved]
  - Pain [Not Recovered/Not Resolved]
  - Limb injury [Recovering/Resolving]
  - Fatigue [Not Recovered/Not Resolved]
  - Balance disorder [Not Recovered/Not Resolved]
  - Gastroenteritis viral [Recovering/Resolving]
  - Diarrhoea [Not Recovered/Not Resolved]
  - Back pain [Not Recovered/Not Resolved]
  - Gait disturbance [Unknown]
  - Limb discomfort [Unknown]

NARRATIVE: CASE EVENT DATE: 20210628
